FAERS Safety Report 6705749-3 (Version None)
Quarter: 2010Q2

REPORT INFORMATION
  Report Type: 
  Country: None (occurrence: None)
  Receive Date: 20100503
  Receipt Date: 20090114
  Transmission Date: 20101027
  Serious: Yes (Other)
  Sender: FDA-Public Use
  Company Number: DE-BAYER-200824542GPV

PATIENT
  Age: 38 Year
  Sex: Female
  Weight: 52 kg

DRUGS (1)
  1. MIRENA [Suspect]
     Indication: CONTRACEPTION
     Route: 015
     Dates: start: 20080319, end: 20080720

REACTIONS (13)
  - ABDOMINAL PAIN [None]
  - ALOPECIA [None]
  - ARRHYTHMIA [None]
  - BACTERIURIA [None]
  - CYSTITIS [None]
  - DEPRESSION [None]
  - ECZEMA [None]
  - ENTEROCOLITIS FUNGAL [None]
  - FATIGUE [None]
  - GASTRITIS [None]
  - SLEEP DISORDER [None]
  - TACHYCARDIA [None]
  - URTICARIA [None]
